FAERS Safety Report 7610464-8 (Version None)
Quarter: 2011Q3

REPORT INFORMATION
  Report Type: 
  Country: None (occurrence: None)
  Receive Date: 20110707
  Receipt Date: 20110621
  Transmission Date: 20111222
  Serious: Yes (Other)
  Sender: FDA-Public Use
  Company Number: TPA2011A03333

PATIENT
  Age: 59 Year
  Sex: Male

DRUGS (5)
  1. LEVEMIR [Concomitant]
  2. LISINOPRIL [Concomitant]
  3. SIMVASTATIN [Concomitant]
  4. ACTOS [Suspect]
     Indication: DIABETES MELLITUS
     Dosage: 45 MG, 1 IN 1 D, PER ORAL
     Route: 048
     Dates: start: 20080101, end: 20110601
  5. SYMILIN(DRUG USED IN DIABETES) [Concomitant]

REACTIONS (2)
  - RENAL FAILURE [None]
  - BLADDER CANCER [None]
